FAERS Safety Report 25183009 (Version 1)
Quarter: 2025Q2

REPORT INFORMATION
  Report Type: Report from Study
  Country: US (occurrence: US)
  Receive Date: 20250410
  Receipt Date: 20250410
  Transmission Date: 20250717
  Serious: No
  Sender: JOHNSON AND JOHNSON
  Company Number: US-JNJFOC-20250377842

PATIENT
  Sex: Female

DRUGS (1)
  1. SIMPONI [Suspect]
     Active Substance: GOLIMUMAB
     Indication: Product used for unknown indication
     Route: 058

REACTIONS (7)
  - Product packaging issue [Unknown]
  - Device defective [Unknown]
  - Pain in extremity [Unknown]
  - Contusion [Unknown]
  - COVID-19 [Unknown]
  - Product dose omission issue [Unknown]
  - Accidental exposure to product [Unknown]
